FAERS Safety Report 9290647 (Version 1)
Quarter: 2013Q2

REPORT INFORMATION
  Report Type: Spontaneous
  Country: FR (occurrence: FR)
  Receive Date: 20130515
  Receipt Date: 20130515
  Transmission Date: 20140414
  Serious: Yes (Death, Other)
  Sender: FDA-Public Use
  Company Number: FR-PFIZER INC-2013142016

PATIENT
  Age: 48 Year
  Sex: Female

DRUGS (1)
  1. ADEPAL [Suspect]
     Indication: CONTRACEPTION
     Dosage: UNK
     Route: 048
     Dates: start: 20110110, end: 20120110

REACTIONS (4)
  - Pulmonary embolism [Fatal]
  - Deep vein thrombosis [Fatal]
  - Iron deficiency anaemia [Unknown]
  - Cervix cancer metastatic [Unknown]
